FAERS Safety Report 4285439-X (Version None)
Quarter: 2004Q1

REPORT INFORMATION
  Report Type: 
  Country: None (occurrence: None)
  Receive Date: 20040202
  Receipt Date: 20010120
  Transmission Date: 20041129
  Serious: Yes (Life-Threatening)
  Sender: FDA-Public Use
  Company Number: 2003-BP-10510BP

PATIENT
  Age: 75 Year
  Sex: Male

DRUGS (8)
  1. MICARDIS [Suspect]
     Indication: CEREBROVASCULAR ACCIDENT PROPHYLAXIS
     Dosage: NR (NR); PO
     Route: 048
     Dates: start: 20030311
  2. MICARDIS [Suspect]
     Indication: MYOCARDIAL INFARCTION
     Dosage: NR (NR); PO
     Route: 048
     Dates: start: 20030311
  3. MICARDIS [Suspect]
     Indication: PROPHYLAXIS
     Dosage: NR (NR); PO
     Route: 048
     Dates: start: 20030311
  4. RAMIPRIL [Suspect]
     Indication: CEREBROVASCULAR ACCIDENT PROPHYLAXIS
     Dosage: NR (NR); PO
     Route: 048
     Dates: start: 20030311, end: 20031210
  5. RAMIPRIL [Suspect]
     Indication: MYOCARDIAL INFARCTION
     Dosage: NR (NR); PO
     Route: 048
     Dates: start: 20030311, end: 20031210
  6. PROPRANOLOL [Concomitant]
  7. FUROSEMIDE [Concomitant]
  8. ACETYLSALICYLIC ACID SRT [Concomitant]

REACTIONS (1)
  - HYPERKALAEMIA [None]
